FAERS Safety Report 6163913-9 (Version None)
Quarter: 2009Q2

REPORT INFORMATION
  Report Type: 
  Country: None (occurrence: None)
  Receive Date: 20090420
  Receipt Date: 20090408
  Transmission Date: 20091009
  Serious: Yes (Hospitalization)
  Sender: FDA-Public Use
  Company Number: GXKR2009QA04477

PATIENT
  Age: 20 Year
  Sex: Male

DRUGS (1)
  1. DICLOFENAC (NGX) (DICLOFENAC) [Suspect]
     Indication: PAIN IN EXTREMITY
     Dosage: INTRAMUSCULAR
     Route: 030

REACTIONS (6)
  - EMBOLIA CUTIS MEDICAMENTOSA [None]
  - INJECTION SITE PAIN [None]
  - MYALGIA [None]
  - NECROSIS [None]
  - RASH [None]
  - TENDERNESS [None]
